FAERS Safety Report 26185749 (Version 1)
Quarter: 2025Q4

REPORT INFORMATION
  Report Type: Spontaneous
  Country: US (occurrence: None)
  Receive Date: 20251219
  Receipt Date: 20251219
  Transmission Date: 20260118
  Serious: Yes (Disabling)
  Sender: FDA-CTU
  Company Number: None

PATIENT
  Age: 40 Year
  Sex: Female
  Weight: 86.4 kg

DRUGS (8)
  1. CYANOCOBALAMIN\TIRZEPATIDE [Suspect]
     Active Substance: CYANOCOBALAMIN\TIRZEPATIDE
     Indication: Obesity
     Dosage: 1 INJECTION SUBCUTANEOUS
     Route: 058
     Dates: start: 20230101, end: 20251219
  2. SERTRALINE [Concomitant]
     Active Substance: SERTRALINE HYDROCHLORIDE
  3. LESSINA [Concomitant]
     Active Substance: ETHINYL ESTRADIOL\LEVONORGESTREL
  4. VYVANSE [Concomitant]
     Active Substance: LISDEXAMFETAMINE DIMESYLATE
  5. Women^s multivitamin [Concomitant]
  6. VITAMIN D [Concomitant]
     Active Substance: VITAMIN D NOS
  7. ALLEGRA [Concomitant]
     Active Substance: FEXOFENADINE HYDROCHLORIDE
  8. PROBIOTICS NOS [Concomitant]
     Active Substance: PROBIOTICS NOS

REACTIONS (4)
  - Cholelithiasis [None]
  - Therapy interrupted [None]
  - Impaired gastric emptying [None]
  - Diarrhoea [None]

NARRATIVE: CASE EVENT DATE: 20251219
